FAERS Safety Report 4478947-X (Version None)
Quarter: 2004Q4

REPORT INFORMATION
  Report Type: 
  Country: None (occurrence: None)
  Receive Date: 20041014
  Receipt Date: 20040929
  Transmission Date: 20050328
  Serious: Yes (Hospitalization)
  Sender: FDA-Public Use
  Company Number: 2004235886JP

PATIENT
  Age: 70 Year
  Sex: Female

DRUGS (2)
  1. CAMPTOSAR [Suspect]
     Indication: COLORECTAL CANCER
     Dosage: IV DRIP
     Route: 041
     Dates: end: 20040827
  2. TEGAFUR (TEGAFUR) [Suspect]
     Indication: COLORECTAL CANCER
     Dosage: ORAL
     Route: 048
     Dates: end: 20040831

REACTIONS (1)
  - INTERSTITIAL LUNG DISEASE [None]
